FAERS Safety Report 8121157-5 (Version None)
Quarter: 2012Q1

REPORT INFORMATION
  Report Type: 
  Country: None (occurrence: None)
  Receive Date: 20120203
  Receipt Date: 20120118
  Transmission Date: 20120608
  Serious: Yes (Hospitalization)
  Sender: FDA-Public Use
  Company Number: 023573

PATIENT
  Sex: Male
  Weight: 65 kg

DRUGS (15)
  1. PEGAPTANIB SODIUM; PLACEBO (CODE NOT BROKEN) [Suspect]
     Indication: DIABETIC RETINAL OEDEMA
     Dosage: 0.3 MG
  2. SITAGLIPTIN PHOSPHATE [Concomitant]
  3. DOMPERIDONE (DOMPERIDONE) [Concomitant]
  4. BENIDINE (BENIDIPINE) [Concomitant]
  5. BUFORMIN HYDROCHLORIDE (BUFORMIN HYDROCHLORIDE) [Concomitant]
  6. SHAKUYAKU-KANZO-TO (LIQUORICE, PEONY) [Concomitant]
  7. KETOPROFEN [Concomitant]
  8. MAGNESIUM OXIDE (MAGNESIUM OXIDE) [Concomitant]
  9. PEGAPTANIB SODIUM (PEGAPTANIB SODIUM) [Suspect]
     Indication: DIABETIC RETINAL OEDEMA
     Dosage: 0.3 MG
     Dates: start: 20111213
  10. GLIMEPIRIDE [Concomitant]
  11. ACONITE (ACONITE) [Concomitant]
  12. VALSARTAN [Concomitant]
  13. LATANOPROST [Concomitant]
  14. OMEPRAZOLE [Concomitant]
  15. EPERISONE (EPERISONE) [Concomitant]

REACTIONS (1)
  - CARDIAC FAILURE ACUTE [None]
